FAERS Safety Report 5512919-9 (Version None)
Quarter: 2007Q4

REPORT INFORMATION
  Report Type: 
  Country: None (occurrence: None)
  Receive Date: 20071112
  Receipt Date: 20071102
  Transmission Date: 20080405
  Serious: Yes (Hospitalization)
  Sender: FDA-Public Use
  Company Number: B0494819A

PATIENT
  Age: 73 Year
  Sex: Male

DRUGS (6)
  1. AUGMENTIN [Suspect]
     Indication: LUNG DISORDER
     Route: 048
     Dates: start: 20070924, end: 20070924
  2. OFLOXACIN [Suspect]
     Indication: LUNG DISORDER
     Dosage: 200MG TWICE PER DAY
     Route: 048
     Dates: start: 20070924, end: 20070924
  3. SOLU-MEDROL [Concomitant]
     Indication: LUNG DISORDER
     Dosage: 40MG PER DAY
     Route: 048
     Dates: start: 20070924
  4. ALDALIX [Concomitant]
     Route: 048
     Dates: start: 20070924
  5. FELODIPINE [Concomitant]
  6. PANTOPRAZOLE SODIUM [Concomitant]

REACTIONS (1)
  - ANGIOEDEMA [None]
